FAERS Safety Report 7933032-7 (Version None)
Quarter: 2011Q4

REPORT INFORMATION
  Report Type: 
  Country: None (occurrence: None)
  Receive Date: 20111122
  Receipt Date: 20111107
  Transmission Date: 20120403
  Serious: No
  Sender: FDA-Public Use
  Company Number: US-B.I. PHARMACEUTICALS,INC./RIDGEFIELD-2011-BP-25747BP

PATIENT
  Sex: Male

DRUGS (9)
  1. VITAMIN D [Concomitant]
     Indication: ROUTINE HEALTH MAINTENANCE
     Dosage: 1000 MG
     Route: 048
     Dates: start: 20110101
  2. ATORVASTATIN [Concomitant]
     Indication: BLOOD CHOLESTEROL INCREASED
     Route: 048
  3. ATENOLOL [Concomitant]
     Indication: HYPERTENSION
     Dosage: 25 MG
     Route: 048
     Dates: start: 20060101
  4. PROTEGRA [Concomitant]
     Indication: PROPHYLAXIS
     Dates: start: 19960101
  5. LOVASTATIN [Concomitant]
     Indication: BLOOD CHOLESTEROL INCREASED
     Dosage: 40 MG
     Route: 048
     Dates: start: 20080101
  6. MULTI-VITAMIN [Concomitant]
     Indication: ROUTINE HEALTH MAINTENANCE
     Dates: start: 20110101
  7. VITAMIN TAB [Concomitant]
     Indication: VITAMIN SUPPLEMENTATION
     Route: 048
  8. PRADAXA [Suspect]
     Indication: ATRIAL FIBRILLATION
     Dosage: 300 MG
     Route: 048
     Dates: start: 20110901
  9. CINNAMON [Concomitant]
     Indication: PROPHYLAXIS
     Dates: start: 20110101

REACTIONS (6)
  - HAEMORRHOID INFECTION [None]
  - HEADACHE [None]
  - MELAENA [None]
  - DYSURIA [None]
  - PAINFUL DEFAECATION [None]
  - ASTHENIA [None]
